FAERS Safety Report 4723928-1 (Version None)
Quarter: 2005Q3

REPORT INFORMATION
  Report Type: 
  Country: None (occurrence: None)
  Receive Date: 20050722
  Receipt Date: 20050715
  Transmission Date: 20060218
  Serious: Yes (Hospitalization)
  Sender: FDA-Public Use
  Company Number: TPA2005A00786

PATIENT
  Age: 50 Year
  Sex: Female
  Weight: 122.4712 kg

DRUGS (6)
  1. ACTOS [Suspect]
     Indication: DIABETES MELLITUS NON-INSULIN-DEPENDENT
     Dosage: 15 MG, 1 IN 1 D, PER ORAL
     Route: 048
     Dates: start: 20020715, end: 20030715
  2. ACTOS [Suspect]
     Indication: DIABETES MELLITUS NON-INSULIN-DEPENDENT
     Dosage: 15 MG, 1 IN 1 D, PER ORAL
     Route: 048
     Dates: start: 20050429, end: 20050513
  3. ALBUTEROL [Concomitant]
  4. HUMALOG MIX 75/25 [Concomitant]
  5. HUMALOG [Concomitant]
  6. GLUCOPHAGE XR (METFORMIN HYDROCHLORIDE) [Concomitant]

REACTIONS (6)
  - DYSPNOEA [None]
  - GASTRIC BYPASS [None]
  - HEPATOMEGALY [None]
  - LIVER FUNCTION TEST ABNORMAL [None]
  - OEDEMA PERIPHERAL [None]
  - SWELLING [None]
